FAERS Safety Report 16934319 (Version 7)
Quarter: 2020Q3

REPORT INFORMATION
  Report Type: Report from Study
  Country: None (occurrence: US)
  Receive Date: 20191018
  Receipt Date: 20200821
  Transmission Date: 20201102
  Serious: Yes (Hospitalization, Other)
  Sender: FDA-Public Use
  Company Number: US-ABBVIE-19K-163-2912528-00

PATIENT
  Age: 24 Year
  Sex: Male
  Weight: 80.81 kg

DRUGS (3)
  1. PREDNISONE. [Concomitant]
     Active Substance: PREDNISONE
     Indication: PRODUCT USED FOR UNKNOWN INDICATION
  2. HUMIRA [Suspect]
     Active Substance: ADALIMUMAB
     Indication: COLITIS ULCERATIVE
     Route: 058
     Dates: start: 20190721
  3. HUMIRA [Suspect]
     Active Substance: ADALIMUMAB
     Indication: CROHN^S DISEASE
     Route: 058
     Dates: start: 2016, end: 201705

REACTIONS (33)
  - Ileostomy [Unknown]
  - Anal fistula [Unknown]
  - Vomiting [Recovering/Resolving]
  - Tooth abscess [Unknown]
  - Post procedural complication [Unknown]
  - Abdominal hernia [Unknown]
  - Decreased appetite [Unknown]
  - Feeling abnormal [Unknown]
  - Anxiety [Not Recovered/Not Resolved]
  - Diarrhoea haemorrhagic [Not Recovered/Not Resolved]
  - Therapeutic response shortened [Unknown]
  - Tooth extraction [Unknown]
  - Weight decreased [Not Recovered/Not Resolved]
  - Intestinal resection [Unknown]
  - Vitreous floaters [Not Recovered/Not Resolved]
  - Rectal haemorrhage [Recovering/Resolving]
  - Muscle spasms [Recovered/Resolved]
  - Constipation [Unknown]
  - Nausea [Recovering/Resolving]
  - Depressed mood [Not Recovered/Not Resolved]
  - Injection site pain [Recovered/Resolved]
  - Fatigue [Not Recovered/Not Resolved]
  - Haemorrhoids [Unknown]
  - Abdominal pain [Recovering/Resolving]
  - Decreased appetite [Unknown]
  - Abnormal faeces [Unknown]
  - Crohn^s disease [Recovering/Resolving]
  - Post procedural discharge [Unknown]
  - Tooth impacted [Unknown]
  - Loss of personal independence in daily activities [Not Recovered/Not Resolved]
  - Diarrhoea [Not Recovered/Not Resolved]
  - Insomnia [Recovering/Resolving]
  - Rectal haemorrhage [Unknown]

NARRATIVE: CASE EVENT DATE: 20170516
